FAERS Safety Report 5008512-7 (Version None)
Quarter: 2006Q2

REPORT INFORMATION
  Report Type: 
  Country: None (occurrence: None)
  Receive Date: 20060522
  Receipt Date: 20060522
  Transmission Date: 20061013
  Serious: Yes (Hospitalization)
  Sender: FDA-Public Use
  Company Number: None

PATIENT
  Age: 86 Year
  Sex: Male
  Weight: 88 kg

DRUGS (4)
  1. WARFARIN SODIUM [Suspect]
     Indication: ATRIAL FIBRILLATION
     Dosage: 5MG   DAILY  PO  2 1/2 YEARS
     Route: 048
     Dates: start: 20030312, end: 20060103
  2. DIGOXIN [Concomitant]
  3. DILTIAZEM [Concomitant]
  4. LVOSTATIN [Concomitant]

REACTIONS (3)
  - HEADACHE [None]
  - SUBDURAL HAEMATOMA [None]
  - VOMITING [None]
